FAERS Safety Report 5234908-4 (Version None)
Quarter: 2007Q1

REPORT INFORMATION
  Report Type: 
  Country: None (occurrence: None)
  Receive Date: 20070209
  Receipt Date: 20070127
  Transmission Date: 20070707
  Serious: Yes (Hospitalization)
  Sender: FDA-Public Use
  Company Number: US-AMGEN-US208902

PATIENT
  Sex: Male

DRUGS (2)
  1. ENBREL [Suspect]
     Indication: PSORIATIC ARTHROPATHY
     Route: 058
     Dates: start: 19990101
  2. ENBREL [Suspect]
     Indication: PSORIASIS

REACTIONS (4)
  - INCISIONAL DRAINAGE [None]
  - OSTEOMYELITIS [None]
  - PSORIASIS [None]
  - PSORIATIC ARTHROPATHY [None]
